FAERS Safety Report 6206015-5 (Version None)
Quarter: 2009Q2

REPORT INFORMATION
  Report Type: 
  Country: None (occurrence: None)
  Receive Date: 20090528
  Receipt Date: 20090518
  Transmission Date: 20091009
  Serious: Yes (Hospitalization, Other)
  Sender: FDA-Public Use
  Company Number: CO-ELI_LILLY_AND_COMPANY-CO200905003989

PATIENT
  Age: 69 Year
  Sex: Female

DRUGS (10)
  1. BYETTA [Suspect]
     Indication: TYPE 2 DIABETES MELLITUS
     Dosage: 10 UG, DAILY (1/D)
     Route: 058
     Dates: start: 20070813
  2. LOSARTAN POTASSIUM [Concomitant]
     Dosage: UNK, UNKNOWN
     Route: 065
  3. OMEPRAZOL [Concomitant]
     Dosage: UNK, UNKNOWN
     Route: 065
  4. DILTIAZEM [Concomitant]
     Dosage: UNK, UNKNOWN
     Route: 065
  5. LOVAZA [Concomitant]
     Dosage: UNK, UNKNOWN
     Route: 065
  6. LANTUS [Concomitant]
     Dosage: UNK, UNKNOWN
     Route: 065
  7. TIROXIN [Concomitant]
     Dosage: 150 MG, UNKNOWN
     Route: 065
  8. DAFLON /01026201/ [Concomitant]
     Dosage: 500 MG, UNKNOWN
     Route: 065
  9. SERETIDE [Concomitant]
     Dosage: UNK, UNKNOWN
     Route: 065
  10. SINGULAIR /01362602/ [Concomitant]
     Dosage: UNK, UNKNOWN
     Route: 065

REACTIONS (6)
  - ARRHYTHMIA [None]
  - BLOOD GLUCOSE ABNORMAL [None]
  - COLD SWEAT [None]
  - DEPRESSED MOOD [None]
  - PALPITATIONS [None]
  - TACHYCARDIA [None]
